FAERS Safety Report 7563005-8 (Version None)
Quarter: 2011Q2

REPORT INFORMATION
  Report Type: 
  Country: None (occurrence: None)
  Receive Date: 20110622
  Receipt Date: 20110608
  Transmission Date: 20111010
  Serious: Yes (Hospitalization, Other)
  Sender: FDA-Public Use
  Company Number: US-AMGEN-USASP2011029749

PATIENT
  Age: 68 Year
  Sex: Female

DRUGS (8)
  1. ESTRATEST H.S. [Concomitant]
  2. METOPROLOL TARTRATE [Concomitant]
  3. ENBREL [Suspect]
     Dosage: 50 MG, QWK
  4. LISINOPRIL [Concomitant]
  5. ENBREL [Suspect]
     Indication: PSORIATIC ARTHROPATHY
     Dosage: 25 MG, 2 TIMES/WK
     Dates: end: 20100801
  6. LIPITOR [Concomitant]
  7. VICODIN [Concomitant]
  8. DIAZIDE                            /00007602/ [Concomitant]
     Dates: start: 20100701

REACTIONS (5)
  - SYNCOPE [None]
  - CORONARY ARTERY BYPASS [None]
  - LIP INJURY [None]
  - FALL [None]
  - THERAPEUTIC RESPONSE DECREASED [None]
